FAERS Safety Report 5431602-1 (Version None)
Quarter: 2007Q3

REPORT INFORMATION
  Report Type: 
  Country: None (occurrence: None)
  Receive Date: 20070830
  Receipt Date: 20070817
  Transmission Date: 20080115
  Serious: Yes (Hospitalization)
  Sender: FDA-Public Use
  Company Number: BR-ELI_LILLY_AND_COMPANY-BR200708004289

PATIENT
  Age: 48 Year
  Sex: Female
  Weight: 73 kg

DRUGS (7)
  1. CYMBALTA [Suspect]
     Indication: DEPRESSION
     Dosage: 30 MG, DAILY (1/D)
     Route: 048
  2. CONTRACEPTIVES NOS [Concomitant]
     Indication: CONTRACEPTION
     Dosage: UNK, DAILY (1/D)
     Route: 065
  3. ATENOLOL W/CHLORTALIDONE [Concomitant]
     Indication: HYPERTENSION
     Dosage: 25 MG, DAILY (1/D)
     Route: 065
  4. PIROXICAM [Concomitant]
     Indication: FIBROMYALGIA
     Dosage: 10 MG, DAILY (1/D)
     Route: 065
  5. IMIPRAMINE [Concomitant]
     Indication: FIBROMYALGIA
     Dosage: 20 MG, DAILY (1/D)
     Route: 065
  6. FAMOTIDINE [Concomitant]
     Indication: FIBROMYALGIA
     Dosage: 20 MG, DAILY (1/D)
     Route: 065
  7. ALPRAZOLAM [Concomitant]
     Indication: FIBROMYALGIA
     Dosage: 1 MG, DAILY (1/D)
     Route: 065

REACTIONS (6)
  - ABDOMINAL PAIN [None]
  - ABDOMINAL PAIN UPPER [None]
  - DYSPEPSIA [None]
  - HEPATIC ENZYME INCREASED [None]
  - NAUSEA [None]
  - WEIGHT DECREASED [None]
